FAERS Safety Report 5949165-0 (Version None)
Quarter: 2008Q4

REPORT INFORMATION
  Report Type: 
  Country: None (occurrence: None)
  Receive Date: 20081111
  Receipt Date: 20081027
  Transmission Date: 20090506
  Serious: Yes (Hospitalization)
  Sender: FDA-Public Use
  Company Number: DE-GENENTECH-270982

PATIENT
  Sex: Female

DRUGS (1)
  1. BEVACIZUMAB [Suspect]
     Indication: BREAST CANCER
     Dosage: 1230 MG, Q3W
     Route: 042
     Dates: start: 20080918

REACTIONS (2)
  - DIVERTICULITIS [None]
  - LARGE INTESTINE PERFORATION [None]
